FAERS Safety Report 7394895-X (Version None)
Quarter: 2011Q2

REPORT INFORMATION
  Report Type: 
  Country: None (occurrence: None)
  Receive Date: 20110405
  Receipt Date: 20110328
  Transmission Date: 20111010
  Serious: Yes (Other)
  Sender: FDA-Public Use
  Company Number: B0704479A

PATIENT
  Age: 2 Year
  Sex: Female

DRUGS (1)
  1. SERETIDE [Suspect]
     Indication: BRONCHITIS
     Dosage: 3PUFF TWICE PER DAY
     Route: 055

REACTIONS (3)
  - OFF LABEL USE [None]
  - OVERDOSE [None]
  - TRANSAMINASES INCREASED [None]
